FAERS Safety Report 19424820 (Version 1)
Quarter: 2021Q2

REPORT INFORMATION
  Report Type: Other
  Country: GB (occurrence: GB)
  Receive Date: 20210617
  Receipt Date: 20210617
  Transmission Date: 20210717
  Serious: Yes (Other)
  Sender: FDA-Public Use
  Company Number: GB-STRIDES ARCOLAB LIMITED-2021SP006435

PATIENT
  Age: 60 Year
  Sex: Male
  Weight: 103.86 kg

DRUGS (1)
  1. GABAPENTIN. [Suspect]
     Active Substance: GABAPENTIN
     Indication: BACK PAIN
     Dosage: UNK, TABLET, TID 3 DAYS; 1 ON THE FIRST DAY, 2 ON THE SECOND AND 3 ON THE THIRD
     Route: 048
     Dates: start: 20210310, end: 20210313

REACTIONS (4)
  - Feeling hot [Recovered/Resolved]
  - Cardiac flutter [Recovered/Resolved]
  - Palpitations [Recovered/Resolved]
  - Off label use [Unknown]

NARRATIVE: CASE EVENT DATE: 20210310
